FAERS Safety Report 9358211 (Version 1)
Quarter: 2013Q2

REPORT INFORMATION
  Report Type: Report from Study
  Country: US (occurrence: US)
  Receive Date: 20130620
  Receipt Date: 20130620
  Transmission Date: 20140414
  Serious: No
  Sender: FDA-Public Use
  Company Number: US-009507513-1306USA007693

PATIENT
  Sex: Male

DRUGS (6)
  1. REBETOL [Suspect]
     Indication: CHRONIC HEPATITIS C
     Dosage: 1000MG DIVIDED DOSE PER DAY
     Dates: start: 20130215, end: 20130313
  2. REBETOL [Suspect]
     Dosage: 600MG DIVIDED DOSE PER DAY
     Dates: start: 20130313
  3. VICTRELIS [Suspect]
     Dosage: 4 CAPSULES, TID
     Dates: start: 20130313
  4. PEGASYS [Suspect]
     Indication: CHRONIC HEPATITIS C
     Dosage: 180 MICROGRAM (PRE-FILLED SYRINGE), QW
     Dates: start: 20130215, end: 20130320
  5. PEGASYS [Suspect]
     Dosage: 135 MICROGRAM, QW
     Dates: start: 20130320
  6. LAMOTRIGINE [Concomitant]
     Dosage: 50 MG, BID

REACTIONS (10)
  - Abnormal dreams [Unknown]
  - Sleep disorder [Unknown]
  - Post-traumatic stress disorder [Unknown]
  - White blood cell count decreased [Unknown]
  - Red blood cell count decreased [Unknown]
  - Nausea [Unknown]
  - Hypersensitivity [Unknown]
  - Cough [Unknown]
  - Vomiting [Unknown]
  - Rash generalised [Unknown]
